FAERS Safety Report 7513256-3 (Version None)
Quarter: 2011Q2

REPORT INFORMATION
  Report Type: 
  Country: None (occurrence: None)
  Receive Date: 20110531
  Receipt Date: 20110124
  Transmission Date: 20111010
  Serious: Yes (Hospitalization, Other)
  Sender: FDA-Public Use
  Company Number: US-BAYER-201026693NA

PATIENT
  Age: 19 Year
  Sex: Female
  Weight: 100 kg

DRUGS (7)
  1. YASMIN [Suspect]
     Route: 048
     Dates: start: 20061101, end: 20080601
  2. PERCOCET [Concomitant]
     Dosage: UNK UNK, PRN
     Route: 048
  3. PRENATAL VITAMINS [Concomitant]
     Dosage: UNK
     Dates: start: 20060401, end: 20061001
  4. OXYCODONE HCL AND ACETAMINOPHEN [Concomitant]
     Dosage: UNK
     Dates: start: 20061101
  5. PHENERGAN HCL [Concomitant]
     Dosage: 25 MG, PRN
     Route: 048
  6. LORTAB [Concomitant]
     Dosage: 10 MG, PRN
     Route: 048
  7. YASMIN [Suspect]
     Indication: PRODUCT USED FOR UNKNOWN INDICATION
     Dosage: UNK UNK, UNK
     Route: 048
     Dates: start: 20050201, end: 20070301

REACTIONS (3)
  - CHOLECYSTITIS [None]
  - CHOLELITHIASIS [None]
  - CHOLECYSTITIS CHRONIC [None]
